FAERS Safety Report 14625199 (Version 1)
Quarter: 2018Q1

REPORT INFORMATION
  Report Type: Spontaneous
  Country: US (occurrence: US)
  Receive Date: 20180312
  Receipt Date: 20180312
  Transmission Date: 20180509
  Serious: Yes (Hospitalization, Other)
  Sender: FDA-Public Use
  Company Number: US-TEVA-2018-US-869044

PATIENT
  Age: 69 Year
  Sex: Female

DRUGS (13)
  1. COPAXONE [Suspect]
     Active Substance: GLATIRAMER ACETATE
     Dosage: FORM STRENGTH: UNKNOWN
     Route: 058
  2. VITAMIN D [Concomitant]
     Active Substance: CHOLECALCIFEROL
  3. TIZANIDINE. [Suspect]
     Active Substance: TIZANIDINE
     Route: 065
  4. AMPYRA [Suspect]
     Active Substance: DALFAMPRIDINE
     Indication: MULTIPLE SCLEROSIS
     Dosage: 20 MILLIGRAM DAILY;
     Route: 048
     Dates: start: 20161019
  5. VERSICARE [Concomitant]
  6. BACLOFEN. [Concomitant]
     Active Substance: BACLOFEN
  7. GRAPE SEED [Concomitant]
     Active Substance: HERBALS\VITIS VINIFERA SEED
  8. DULOXETINE. [Concomitant]
     Active Substance: DULOXETINE
  9. MINERALS [Concomitant]
     Active Substance: MINERALS
  10. TRAMADOL HYDROCHLORIDE. [Concomitant]
     Active Substance: TRAMADOL HYDROCHLORIDE
  11. OMEPRAZOLE. [Concomitant]
     Active Substance: OMEPRAZOLE
  12. GABAPENTINE [Concomitant]
     Active Substance: GABAPENTIN
  13. CALCIUM [Concomitant]
     Active Substance: CALCIUM

REACTIONS (7)
  - Gait inability [Recovering/Resolving]
  - Injury [Recovering/Resolving]
  - Head injury [Recovering/Resolving]
  - Nausea [Unknown]
  - Fall [Recovered/Resolved]
  - Dizziness [Unknown]
  - Fall [Recovered/Resolved]

NARRATIVE: CASE EVENT DATE: 20161102
